FAERS Safety Report 5987703-2 (Version None)
Quarter: 2008Q4

REPORT INFORMATION
  Report Type: 
  Country: None (occurrence: None)
  Receive Date: 20081209
  Receipt Date: 20081203
  Transmission Date: 20090506
  Serious: Yes (Hospitalization, Other)
  Sender: FDA-Public Use
  Company Number: US-ROXANE LABORATORIES, INC.-2008-RO-00339RO

PATIENT
  Age: 53 Year
  Sex: Female

DRUGS (2)
  1. MORPHINE [Suspect]
     Indication: BACK PAIN
     Dosage: 17.5MG
     Route: 037
  2. OPIOIDS [Concomitant]
     Indication: PAIN
     Route: 042

REACTIONS (4)
  - DRUG INEFFECTIVE [None]
  - GRANULOMA [None]
  - INFECTION [None]
  - PELVIC MASS [None]
